FAERS Safety Report 23108020 (Version 3)
Quarter: 2024Q4

REPORT INFORMATION
  Report Type: Spontaneous
  Country: US (occurrence: US)
  Receive Date: 20231026
  Receipt Date: 20241209
  Transmission Date: 20250115
  Serious: No
  Sender: REGENERON
  Company Number: US-REGENERON PHARMACEUTICALS, INC.-2023-123609

PATIENT
  Sex: Female

DRUGS (3)
  1. EYLEA [Suspect]
     Active Substance: AFLIBERCEPT
     Indication: Neovascular age-related macular degeneration
     Dosage: UNK, EVERY FIVE TO SIX WEEKS IN THE LEFT EYE (FORMULATION: UNKNOWN), FIRST INJECTION
     Dates: start: 20230609, end: 20230609
  2. EYLEA [Suspect]
     Active Substance: AFLIBERCEPT
     Dosage: UNK, EVERY FIVE TO SIX WEEKS IN THE LEFT EYE (FORMULATION: UNKNOWN), SECOND INJECTION
     Dates: start: 20230720, end: 20230720
  3. EYLEA [Suspect]
     Active Substance: AFLIBERCEPT
     Dosage: UNK, EVERY FIVE TO SIX WEEKS IN THE LEFT EYE (FORMULATION: UNKNOWN), THIRD INJECTION
     Dates: start: 20230913, end: 20230913

REACTIONS (6)
  - Halo vision [Unknown]
  - Photopsia [Unknown]
  - Middle insomnia [Unknown]
  - Unevaluable event [Unknown]
  - Vision blurred [Unknown]
  - Drug ineffective [Unknown]

NARRATIVE: CASE EVENT DATE: 20230101
